FAERS Safety Report 5500192-7 (Version None)
Quarter: 2007Q4

REPORT INFORMATION
  Report Type: 
  Country: None (occurrence: None)
  Receive Date: 20071025
  Receipt Date: 20071017
  Transmission Date: 20080405
  Serious: Yes (Death, Hospitalization)
  Sender: FDA-Public Use
  Company Number: E2090-00259-SPO-JP

PATIENT
  Age: 6 Year
  Sex: Female

DRUGS (3)
  1. ZONISAMIDE [Suspect]
     Indication: EPILEPSY
     Dosage: 0.16 GM, ORAL; 0.32 GM, ORAL; 0.35 GM, ORAL
     Route: 048
     Dates: start: 20070317, end: 20070325
  2. ZONISAMIDE [Suspect]
     Indication: EPILEPSY
     Dosage: 0.16 GM, ORAL; 0.32 GM, ORAL; 0.35 GM, ORAL
     Route: 048
     Dates: start: 20070326, end: 20070607
  3. ZONISAMIDE [Suspect]
     Indication: EPILEPSY
     Dosage: 0.16 GM, ORAL; 0.32 GM, ORAL; 0.35 GM, ORAL
     Route: 048
     Dates: start: 20070608, end: 20070629

REACTIONS (12)
  - CARDIAC HYPERTROPHY [None]
  - CYTOMEGALOVIRUS INFECTION [None]
  - DRUG ERUPTION [None]
  - DRUG RASH WITH EOSINOPHILIA AND SYSTEMIC SYMPTOMS [None]
  - ERYTHEMA INFECTIOSUM [None]
  - HEPATIC FUNCTION ABNORMAL [None]
  - HUMAN HERPESVIRUS 6 INFECTION [None]
  - LYMPHOCYTE STIMULATION TEST POSITIVE [None]
  - MEASLES ANTIBODY POSITIVE [None]
  - MYOCARDITIS [None]
  - RESPIRATORY DISORDER [None]
  - VIRAL MYOCARDITIS [None]
